FAERS Safety Report 13278507 (Version 1)
Quarter: 2017Q1

REPORT INFORMATION
  Report Type: Spontaneous
  Country: ES (occurrence: ES)
  Receive Date: 20170228
  Receipt Date: 20170228
  Transmission Date: 20170428
  Serious: Yes (Congenital Anomaly, Other)
  Sender: FDA-Public Use
  Company Number: ES-MYLANLABS-2017M1011952

PATIENT

DRUGS (3)
  1. RIFAMPICIN [Suspect]
     Active Substance: RIFAMPIN
     Dosage: 10 MG/KG/DAY
     Route: 064
  2. ISONIAZID. [Suspect]
     Active Substance: ISONIAZID
     Dosage: 5 MG/KG/DAY
     Route: 064
  3. PYRAZINAMIDE. [Concomitant]
     Active Substance: PYRAZINAMIDE
     Dosage: 20 MG/KG/DAY
     Route: 064

REACTIONS (2)
  - Foetal exposure during pregnancy [Recovered/Resolved]
  - Congenital absence of cranial vault [Unknown]
